FAERS Safety Report 7212120-7 (Version None)
Quarter: 2011Q1

REPORT INFORMATION
  Report Type: 
  Country: None (occurrence: None)
  Receive Date: 20110106
  Receipt Date: 20101231
  Transmission Date: 20110831
  Serious: No
  Sender: FDA-Public Use
  Company Number: US-BAYER-2011-001143

PATIENT
  Sex: Female

DRUGS (3)
  1. OCELLA [Suspect]
     Indication: ACNE
  2. YAZ [Suspect]
     Indication: ACNE
  3. YASMIN [Suspect]
     Indication: ACNE

REACTIONS (2)
  - INJURY [None]
  - PAIN [None]
